FAERS Safety Report 7219598-3 (Version None)
Quarter: 2011Q1

REPORT INFORMATION
  Report Type: 
  Country: None (occurrence: None)
  Receive Date: 20110111
  Receipt Date: 20110106
  Transmission Date: 20110831
  Serious: Yes (Death, Other)
  Sender: FDA-Public Use
  Company Number: US-JNJFOC-20101209028

PATIENT
  Sex: Female
  Weight: 74.84 kg

DRUGS (4)
  1. ULTRACET [Suspect]
     Indication: INTERVERTEBRAL DISC PROTRUSION
     Route: 048
  2. TRAMADOL [Suspect]
     Indication: INTERVERTEBRAL DISC PROTRUSION
     Route: 048
  3. ULTRACET [Suspect]
     Indication: PAIN IN EXTREMITY
     Route: 048
  4. ULTRACET [Suspect]
     Indication: BACK PAIN
     Route: 048

REACTIONS (12)
  - HAEMORRHOIDS [None]
  - VOMITING [None]
  - DIZZINESS [None]
  - NAUSEA [None]
  - INCORRECT DRUG ADMINISTRATION DURATION [None]
  - CARDIAC FAILURE CONGESTIVE [None]
  - GASTRIC DISORDER [None]
  - CONSTIPATION [None]
  - SOMNOLENCE [None]
  - INSOMNIA [None]
  - OVERDOSE [None]
  - VISION BLURRED [None]
